FAERS Safety Report 23924208 (Version 1)
Quarter: 2024Q2

REPORT INFORMATION
  Report Type: Spontaneous
  Country: BR (occurrence: BR)
  Receive Date: 20240531
  Receipt Date: 20240531
  Transmission Date: 20240716
  Serious: Yes (Life-Threatening)
  Sender: FDA-Public Use
  Company Number: BR-002147023-NVSC2024BR113501

PATIENT
  Sex: Female

DRUGS (1)
  1. BETOPTIC S [Suspect]
     Active Substance: BETAXOLOL HYDROCHLORIDE
     Indication: Intraocular pressure test
     Dosage: UNK (0.25%, 5 ML)
     Route: 065

REACTIONS (3)
  - Pain [Unknown]
  - Intraocular pressure increased [Recovering/Resolving]
  - Product supply issue [Unknown]
